FAERS Safety Report 9078795 (Version 1)
Quarter: 2013Q1

REPORT INFORMATION
  Report Type: Report from Study
  Country: US (occurrence: US)
  Receive Date: 20130130
  Receipt Date: 20130130
  Transmission Date: 20140127
  Serious: No
  Sender: FDA-Public Use
  Company Number: US-ABBOTT-12P-163-0974174-00

PATIENT
  Age: 61 Year
  Sex: Female

DRUGS (7)
  1. HUMIRA [Suspect]
     Indication: RHEUMATOID ARTHRITIS
  2. SYNTHYROID [Concomitant]
     Indication: HYPOTHYROIDISM
  3. CYMBALTA [Concomitant]
     Indication: FIBROMYALGIA
     Dosage: 90MG DAILY
  4. CELEBREX [Concomitant]
     Indication: FIBROMYALGIA
     Dosage: 100MG DAILY
  5. RESTORIL [Concomitant]
     Indication: INSOMNIA
     Dosage: 30MG EVERY NIGHT
  6. TRAZODONE [Concomitant]
     Indication: INSOMNIA
  7. RITALIN [Concomitant]
     Indication: PRODUCT USED FOR UNKNOWN INDICATION
     Dosage: 20MG EVERY MORNING

REACTIONS (3)
  - Fatigue [Recovering/Resolving]
  - Ankylosing spondylitis [Recovering/Resolving]
  - Rash [Recovering/Resolving]
